FAERS Safety Report 15229769 (Version 1)
Quarter: 2018Q3

REPORT INFORMATION
  Report Type: Spontaneous
  Country: US (occurrence: US)
  Receive Date: 20180802
  Receipt Date: 20180802
  Transmission Date: 20181010
  Serious: Yes (Other)
  Sender: FDA-Public Use
  Company Number: US-ACCORD-062659

PATIENT
  Age: 59 Year
  Sex: Female
  Weight: 116.57 kg

DRUGS (19)
  1. DOCETAXEL ACCORD [Suspect]
     Active Substance: DOCETAXEL
     Indication: INVASIVE DUCTAL BREAST CARCINOMA
     Route: 042
     Dates: start: 20140827, end: 20141217
  2. ALPRAZOLAM. [Concomitant]
     Active Substance: ALPRAZOLAM
  3. NEULASTA [Concomitant]
     Active Substance: PEGFILGRASTIM
     Dosage: STRENGTH: 6 MG/0.6 ML INJECTION?INJECT 6 MG INTO THE SKIN.
     Route: 058
     Dates: end: 20150303
  4. HERCEPTIN [Suspect]
     Active Substance: TRASTUZUMAB
     Indication: INVASIVE DUCTAL BREAST CARCINOMA
  5. LOMOTIL [Concomitant]
     Active Substance: ATROPINE SULFATE\DIPHENOXYLATE HYDROCHLORIDE
     Dosage: STRENGTH: 2.5?0.025 MG PER TABLET
     Dates: start: 20140827, end: 20150422
  6. HYDROCODONE [Concomitant]
     Active Substance: HYDROCODONE
  7. PROTONIX [Concomitant]
     Active Substance: PANTOPRAZOLE SODIUM
     Dosage: STRENGTH: 40 MG?TAKE 40 MG BY MOUTH DAILY
     Route: 048
     Dates: end: 20150303
  8. K?DUR [Concomitant]
     Active Substance: POTASSIUM CHLORIDE
     Dosage: STRENGTH: 20 MEQ?1 TAB BY MOUTH 2 TIMES DAILY
     Dates: start: 20140917, end: 20151027
  9. NORCO [Concomitant]
     Active Substance: ACETAMINOPHEN\HYDROCODONE BITARTRATE
     Indication: PAIN
     Dosage: STRENGTH: 10?325 MG PER TABLET?TAKE 1 TAB BY MOUTH EVERY 6 HOURS AS NEEDED
     Route: 048
     Dates: start: 20140827, end: 20150122
  10. ZOFRAN [Concomitant]
     Active Substance: ONDANSETRON HYDROCHLORIDE
     Indication: NAUSEA
     Dosage: STRENGTH: 8 MG?TAKE 1 TAB BY MOUTH EVERY 12 HOURS AS NEEDED
     Route: 048
     Dates: start: 20140725, end: 20150422
  11. COMPAZINE [Concomitant]
     Active Substance: PROCHLORPERAZINE MALEATE
     Indication: NAUSEA
     Dosage: STRENGTH: 10 MG?TAKE 1 TAB BY MOUTH EVERY 6 HOURS AS NEEDED
     Route: 048
     Dates: start: 20140814, end: 20150422
  12. CYTOXAN [Suspect]
     Active Substance: CYCLOPHOSPHAMIDE
     Indication: INVASIVE DUCTAL BREAST CARCINOMA
     Dates: start: 20140827, end: 20141217
  13. DULCOLAX NOS [Concomitant]
     Active Substance: BISACODYL OR DOCUSATE SODIUM
     Indication: CONSTIPATION
     Dosage: STRENGTH: 5 MG?TAKE 5 MG BY MOUTH ONCE DAILY AS NEEDED
     Route: 048
     Dates: end: 20150422
  14. ERGOCALCIFEROL. [Concomitant]
     Active Substance: ERGOCALCIFEROL
     Dosage: STRENGTH: 2000 UNITS?TAKE BY MOUTH DAILY
     Route: 048
     Dates: end: 20151027
  15. EMLA [Concomitant]
     Active Substance: LIDOCAINE\PRILOCAINE
     Dosage: STRENGTH: 2.5?2.5 % CREAM?APPLY SMALL AMOUNT TO PORT, PRIOR TO PORT ACCESSING
     Dates: start: 20140806, end: 20150422
  16. ATIVAN [Concomitant]
     Active Substance: LORAZEPAM
     Indication: NAUSEA
     Dosage: STRENGTH: 1 MG?TAKE 1 TAB BY MOUTH EVERY 6 HOURS AS NEEDED
     Route: 048
     Dates: start: 20141008, end: 20141217
  17. DECADRON [Concomitant]
     Active Substance: DEXAMETHASONE
     Dosage: STRENGTH: 4 MG?TAKE 2 TABS BY MOUTH EVERY 12 HOURS. THE DAY BEFORE, THE DAY OF AND DAY AFTER CHEMO.
     Route: 048
     Dates: start: 20140725, end: 20150303
  18. MIRALAX [Concomitant]
     Active Substance: POLYETHYLENE GLYCOL 3350
     Indication: CONSTIPATION
     Dosage: TAKE 17 G BY MOUTH DAILY AS NEEDED
     Route: 048
     Dates: start: 20140808, end: 20150422
  19. KLOR [Concomitant]
     Indication: BLOOD POTASSIUM DECREASED
     Dosage: STRENGTH: 20 MEQ PACKET?TAKE 20 MEQ BY MOUTH 2 TIMES DAILY
     Route: 048
     Dates: start: 20140819, end: 20141119

REACTIONS (1)
  - Alopecia [Not Recovered/Not Resolved]

NARRATIVE: CASE EVENT DATE: 20150201
